FAERS Safety Report 15400984 (Version 1)
Quarter: 2018Q3

REPORT INFORMATION
  Report Type: Spontaneous
  Country: US (occurrence: US)
  Receive Date: 20180913
  Receipt Date: 20180913
  Transmission Date: 20181010
  Serious: Yes (Disabling, Other)
  Sender: FDA-Public Use
  Company Number: None

PATIENT
  Age: 62 Year
  Sex: Female
  Weight: 69.75 kg

DRUGS (6)
  1. SERTRALINE [Concomitant]
     Active Substance: SERTRALINE HYDROCHLORIDE
  2. HYDROCODONE [Concomitant]
     Active Substance: HYDROCODONE
  3. XANAX [Concomitant]
     Active Substance: ALPRAZOLAM
  4. VFEND [Suspect]
     Active Substance: VORICONAZOLE
     Indication: FUNGAL INFECTION
  5. PEPCID [Concomitant]
     Active Substance: FAMOTIDINE
  6. METFORMIN [Concomitant]
     Active Substance: METFORMIN HYDROCHLORIDE

REACTIONS (10)
  - Confusional state [None]
  - Dysphagia [None]
  - Vomiting [None]
  - Malaise [None]
  - Dementia [None]
  - Foreign body in respiratory tract [None]
  - Insomnia [None]
  - Tremor [None]
  - Amnesia [None]
  - Aphasia [None]

NARRATIVE: CASE EVENT DATE: 20090214
